FAERS Safety Report 6919046-4 (Version None)
Quarter: 2010Q3

REPORT INFORMATION
  Report Type: 
  Country: None (occurrence: None)
  Receive Date: 20100811
  Receipt Date: 20100728
  Transmission Date: 20110219
  Serious: Yes (Other)
  Sender: FDA-Public Use
  Company Number: PHHY2010BR49926

PATIENT
  Age: 49 Year
  Sex: Male

DRUGS (1)
  1. VOLTAREN [Suspect]
     Route: 030

REACTIONS (3)
  - ESCHAR [None]
  - INJECTION SITE NECROSIS [None]
  - LESION EXCISION [None]
